FAERS Safety Report 21384957 (Version 1)
Quarter: 2022Q3

REPORT INFORMATION
  Report Type: Spontaneous
  Country: US (occurrence: US)
  Receive Date: 20220928
  Receipt Date: 20220928
  Transmission Date: 20221027
  Serious: No
  Sender: FDA-Public Use
  Company Number: US-AVEO ONCOLOGY-2022-AVEO-US000309

PATIENT

DRUGS (13)
  1. FOTIVDA [Suspect]
     Active Substance: TIVOZANIB HYDROCHLORIDE
     Indication: Renal cell carcinoma
     Dosage: 1.34 MG, DAILY FOR 21 DAYS WITH 7 DAYS OFF (28-DAY CYCLE)
     Route: 048
     Dates: start: 20220720
  2. ZOFRAN [Concomitant]
     Active Substance: ONDANSETRON HYDROCHLORIDE
     Dosage: 8 MG
  3. PANTOPRAZOLE [Concomitant]
     Active Substance: PANTOPRAZOLE
  4. POTASSIUM CHLORIDE [Concomitant]
     Active Substance: POTASSIUM CHLORIDE
  5. ALDACTONE [Concomitant]
     Active Substance: SPIRONOLACTONE
     Dosage: 100 MG
  6. ELIQUIS [Concomitant]
     Active Substance: APIXABAN
     Dosage: 2.5 MG
  7. FLECAINIDE [Concomitant]
     Active Substance: FLECAINIDE
     Dosage: 50 MG
  8. LOSARTAN [Concomitant]
     Active Substance: LOSARTAN
     Dosage: 100 MG
  9. LEVOTHYROXINE [Concomitant]
     Active Substance: LEVOTHYROXINE
     Dosage: 75 UG
  10. VITAMIN B COMPLEX [Concomitant]
     Active Substance: CYANOCOBALAMIN\DEXPANTHENOL\NIACINAMIDE\PYRIDOXINE HYDROCHLORIDE\RIBOFLAVIN 5^-PHOSPHATE SODIUM\THIA
  11. ALIGN [Concomitant]
     Active Substance: BIFIDOBACTERIUM LONGUM SUBSP. INFANTIS
  12. HYDROCORTISONE [Concomitant]
     Active Substance: HYDROCORTISONE
  13. Prebiotic [Concomitant]

REACTIONS (3)
  - Dysphonia [Not Recovered/Not Resolved]
  - Headache [Unknown]
  - Night sweats [Unknown]

NARRATIVE: CASE EVENT DATE: 20220723
